FAERS Safety Report 7802931 (Version 12)
Quarter: 2013Q1

REPORT INFORMATION
  Report Type: Spontaneous
  Country: US (occurrence: US)
  Receive Date: 20110207
  Receipt Date: 20130108
  Transmission Date: 20140127
  Serious: Yes (Hospitalization, Other)
  Sender: FDA-Public Use
  Company Number: US-009507513-1101USA03582

PATIENT
  Sex: 0

DRUGS (4)
  1. FOSAMAX [Suspect]
     Indication: OSTEOPOROSIS
     Dosage: 70 MG, UNK
     Route: 048
     Dates: start: 20010514, end: 20100725
  2. MK-9278 [Concomitant]
     Dates: start: 1986
  3. CALTRATE [Concomitant]
     Dates: start: 20010101
  4. METICORTEN [Concomitant]
     Indication: SYSTEMIC LUPUS ERYTHEMATOSUS
     Dates: start: 19840101

REACTIONS (34)
  - Intramedullary rod insertion [Unknown]
  - Femur fracture [Unknown]
  - Blood disorder [Unknown]
  - Haemoglobin decreased [Unknown]
  - Idiopathic thrombocytopenic purpura [Unknown]
  - Diabetes mellitus [Not Recovered/Not Resolved]
  - Dyspnoea exertional [Unknown]
  - Connective tissue disorder [Unknown]
  - Blood glucose increased [Unknown]
  - Polyp [Unknown]
  - Radiculitis lumbosacral [Unknown]
  - Haematuria [Unknown]
  - Stress urinary incontinence [Unknown]
  - Mitral valve incompetence [Unknown]
  - Platelet count increased [Unknown]
  - Fall [Unknown]
  - Rectal haemorrhage [Unknown]
  - Supraventricular tachycardia [Unknown]
  - Renal cyst [Unknown]
  - Cystitis [Unknown]
  - Paraesthesia [Unknown]
  - Uterine disorder [Unknown]
  - Arthropathy [Unknown]
  - Haemorrhage urinary tract [Unknown]
  - Vulvovaginal burning sensation [Unknown]
  - Omphalitis [Recovered/Resolved]
  - Toothache [Unknown]
  - Colon adenoma [Unknown]
  - Diverticulum [Unknown]
  - Large intestine polyp [Unknown]
  - Vaginal infection [Unknown]
  - Pollakiuria [Unknown]
  - Urinary tract infection [Recovering/Resolving]
  - Oesophagitis [Unknown]
